FAERS Safety Report 20834728 (Version 1)
Quarter: 2022Q2

REPORT INFORMATION
  Report Type: Spontaneous
  Country: IT (occurrence: IT)
  Receive Date: 20220516
  Receipt Date: 20220516
  Transmission Date: 20220720
  Serious: Yes (Hospitalization)
  Sender: FDA-Public Use
  Company Number: IT-MYLANLABS-2022M1035329

PATIENT
  Age: 38 Year
  Sex: Female

DRUGS (24)
  1. LACOSAMIDE [Suspect]
     Active Substance: LACOSAMIDE
     Indication: Status epilepticus
     Dosage: 400 MILLIGRAM, QD
     Route: 065
     Dates: start: 201608
  2. LACOSAMIDE [Suspect]
     Active Substance: LACOSAMIDE
     Indication: Status epilepticus
     Dosage: DOSAGE: 400 TO 600 MG/DAY
     Route: 042
  3. LEVETIRACETAM [Suspect]
     Active Substance: LEVETIRACETAM
     Indication: Status epilepticus
     Dosage: 3000 MILLIGRAM, QD
     Route: 065
     Dates: start: 201608
  4. LEVETIRACETAM [Suspect]
     Active Substance: LEVETIRACETAM
     Indication: Status epilepticus
     Dosage: DOSAGE: 2000 TO 3000 MG/DAY
     Route: 042
  5. TOPIRAMATE [Suspect]
     Active Substance: TOPIRAMATE
     Indication: Status epilepticus
     Dosage: DOSAGE: 300 TO 600 MG/DAY
  6. THIOPENTAL [Suspect]
     Active Substance: THIOPENTAL
     Indication: Status epilepticus
     Dosage: 3 MILLIGRAM/KILOGRAM, QH INITIAL DOSE
     Route: 065
     Dates: start: 201608
  7. THIOPENTAL [Suspect]
     Active Substance: THIOPENTAL
     Dosage: DOSAGE: 1 TO 5 MG/KG/H
     Route: 065
  8. PHENYTOIN [Suspect]
     Active Substance: PHENYTOIN
     Indication: Status epilepticus
     Dosage: DOSE: 250 TO 750 MG/DAY
     Route: 042
  9. PHENYTOIN [Suspect]
     Active Substance: PHENYTOIN
     Indication: Status epilepticus
     Dosage: 800 MILLIGRAM (LOADING DOSE)
     Route: 065
     Dates: start: 201608
  10. PHENYTOIN [Suspect]
     Active Substance: PHENYTOIN
     Dosage: 500 MILLIGRAM, QD
     Route: 065
  11. MIDAZOLAM [Suspect]
     Active Substance: MIDAZOLAM
     Indication: Status epilepticus
     Dosage: 0.13 MILLIGRAM/KILOGRAM, QH INITIAL DOSE
     Route: 065
     Dates: start: 201608
  12. MIDAZOLAM [Suspect]
     Active Substance: MIDAZOLAM
     Dosage: DOSAGE: 0.13 TO 0.3 MG/KG/H
     Route: 065
  13. PHENOBARBITAL [Suspect]
     Active Substance: PHENOBARBITAL
     Indication: Status epilepticus
     Dosage: 200 MILLIGRAM, QD
     Route: 065
     Dates: start: 201608
  14. PHENOBARBITAL [Suspect]
     Active Substance: PHENOBARBITAL
     Indication: Status epilepticus
     Dosage: DOSAGE: 200 TO 300 MG/DAY
     Route: 042
  15. VALPROIC ACID [Suspect]
     Active Substance: VALPROIC ACID
     Indication: Status epilepticus
     Dosage: DOSAGE: 500 TO 2000 MG/DAY
     Route: 042
  16. PERAMPANEL [Suspect]
     Active Substance: PERAMPANEL
     Indication: Status epilepticus
     Dosage: DOSAGE: 8 TO 16 MG/DAY
  17. PROPOFOL [Suspect]
     Active Substance: PROPOFOL
     Indication: Status epilepticus
     Dosage: DOSAGE: 2 TO 6.6 MG/KG/H
     Route: 065
  18. KETAMINE [Suspect]
     Active Substance: KETAMINE
     Indication: Status epilepticus
     Dosage: DOSAGE: 2 TO 4 MG/KG/H
     Route: 065
  19. HUMAN IMMUNOGLOBULIN G [Suspect]
     Active Substance: HUMAN IMMUNOGLOBULIN G
     Indication: Status epilepticus
     Dosage: DOSAGE: 0.4 G/KG TWO TIMES OVER 5 DAYS
     Route: 042
  20. SEVOFLURANE [Suspect]
     Active Substance: SEVOFLURANE
     Indication: Status epilepticus
     Dosage: UNK
     Route: 065
  21. METHYLPREDNISOLONE [Suspect]
     Active Substance: METHYLPREDNISOLONE
     Indication: Status epilepticus
     Dosage: DOSAGE: 1 G/DAY, THREE TIMES OVER 5 DAYS
     Route: 042
  22. AMOXICILLIN [Concomitant]
     Active Substance: AMOXICILLIN
     Indication: Evidence based treatment
     Dosage: UNK
     Route: 065
  23. MAGNESIUM SULFATE [Concomitant]
     Active Substance: MAGNESIUM SULFATE
     Indication: Supplementation therapy
     Dosage: UNK
     Route: 065
  24. LORAZEPAM [Concomitant]
     Active Substance: LORAZEPAM
     Indication: Status epilepticus
     Dosage: UNK
     Route: 042
     Dates: start: 201608

REACTIONS (1)
  - Treatment failure [Unknown]

NARRATIVE: CASE EVENT DATE: 20160801
